FAERS Safety Report 8364398-4 (Version None)
Quarter: 2012Q2

REPORT INFORMATION
  Report Type: 
  Country: None (occurrence: None)
  Receive Date: 20120514
  Receipt Date: 20120430
  Transmission Date: 20120825
  Serious: Yes (Other)
  Sender: FDA-Public Use
  Company Number: 1201-011

PATIENT
  Age: 76 Year
  Sex: Female

DRUGS (6)
  1. EYLEA [Suspect]
     Indication: AGE-RELATED MACULAR DEGENERATION
     Dosage: 2 MO, 1 IN 1 M, INTRAVITREAL
     Dates: start: 20111216
  2. LUMIGAN [Concomitant]
  3. TRUSOPT [Concomitant]
  4. COUMADIN [Concomitant]
  5. PRESERVISION (OCUVITE) [Concomitant]
  6. FLAXSEED (LINUM USITATISSIMUM SEED OIL) [Concomitant]

REACTIONS (5)
  - IRITIS [None]
  - ANXIETY [None]
  - VITREOUS HAEMORRHAGE [None]
  - RETINAL ARTERY EMBOLISM [None]
  - EYE INFLAMMATION [None]
